FAERS Safety Report 19803604 (Version 1)
Quarter: 2021Q3

REPORT INFORMATION
  Report Type: Spontaneous
  Country: US (occurrence: US)
  Receive Date: 20210908
  Receipt Date: 20210908
  Transmission Date: 20211014
  Serious: Yes (Life-Threatening)
  Sender: FDA-Public Use
  Company Number: None

PATIENT
  Age: 55 Year
  Sex: Male
  Weight: 150.9 kg

DRUGS (14)
  1. INSULIN DETEMIR 30U [Concomitant]
  2. ALBUTEROL 90 MCG/INH [Concomitant]
  3. SYMBICORT 160MCG?4.5MCG/INH [Concomitant]
  4. TIZANIDINE 4MG [Concomitant]
     Active Substance: TIZANIDINE
  5. SILDENAFIL 20MG [Concomitant]
     Active Substance: SILDENAFIL
  6. ASPIRIN 81MG [Concomitant]
     Active Substance: ASPIRIN
  7. FLUTICASONE NASAL SPRAY [Concomitant]
     Active Substance: FLUTICASONE
  8. MONTELUKAST [Concomitant]
     Active Substance: MONTELUKAST SODIUM
  9. OMEPRAZOLE 40MG [Concomitant]
     Active Substance: OMEPRAZOLE
  10. CYANOCOBALAMIN. [Concomitant]
     Active Substance: CYANOCOBALAMIN
  11. METFORMIN [Concomitant]
     Active Substance: METFORMIN HYDROCHLORIDE
  12. SEMAGLUTIDE 2MG/1.5ML [Concomitant]
  13. LISINOPRIL. [Concomitant]
     Active Substance: LISINOPRIL
  14. REGEN?COV [Suspect]
     Active Substance: CASIRIVIMAB\IMDEVIMAB

REACTIONS (3)
  - Lip swelling [None]
  - Infusion related reaction [None]
  - Pruritus [None]

NARRATIVE: CASE EVENT DATE: 20210905
